FAERS Safety Report 7585935-3 (Version None)
Quarter: 2011Q2

REPORT INFORMATION
  Report Type: 
  Country: None (occurrence: None)
  Receive Date: 20110624
  Receipt Date: 20110526
  Transmission Date: 20111010
  Serious: Yes (Other)
  Sender: FDA-Public Use
  Company Number: IMP_05392_2011

PATIENT
  Age: 63 Year
  Sex: Female

DRUGS (6)
  1. THYROID MEDICATION [Concomitant]
  2. INSULIN [Concomitant]
  3. AMOXICILLIN [Concomitant]
  4. CLARITIN-D (NOT SPECIFIED) [Suspect]
     Indication: NASOPHARYNGITIS
     Dosage: DF
     Dates: end: 20110525
  5. CLARITIN-D (NOT SPECIFIED) [Suspect]
     Indication: RHINORRHOEA
     Dosage: DF
     Dates: end: 20110525
  6. CLARITIN-D (NOT SPECIFIED) [Suspect]
     Indication: LACRIMATION INCREASED
     Dosage: DF
     Dates: end: 20110525

REACTIONS (7)
  - PRODUCT QUALITY ISSUE [None]
  - NAUSEA [None]
  - SUICIDAL IDEATION [None]
  - FEELING ABNORMAL [None]
  - DEPRESSED MOOD [None]
  - ANGER [None]
  - THERAPEUTIC RESPONSE UNEXPECTED [None]
